FAERS Safety Report 22306372 (Version 1)
Quarter: 2023Q2

REPORT INFORMATION
  Report Type: Spontaneous
  Country: US (occurrence: None)
  Receive Date: 20230511
  Receipt Date: 20230511
  Transmission Date: 20230722
  Serious: Yes (Hospitalization)
  Sender: FDA-Public Use
  Company Number: US-ROCHE-3344666

PATIENT
  Sex: Male
  Weight: 95.340 kg

DRUGS (5)
  1. VABYSMO [Suspect]
     Active Substance: FARICIMAB-SVOA
     Indication: Neovascular age-related macular degeneration
     Dosage: INJECTION EVERY 4 TO 5 WEEKS ;ONGOING: NO
     Route: 050
     Dates: start: 202301
  2. UROCIT-K [Concomitant]
     Active Substance: POTASSIUM CITRATE
     Dosage: TAKES ONE TABLET TWICE A DAY ;ONGOING: YES
     Route: 048
  3. TOPROL XL [Concomitant]
     Active Substance: METOPROLOL SUCCINATE
     Indication: Extrasystoles
  4. ASPIRIN [Concomitant]
     Active Substance: ASPIRIN
     Route: 048
  5. ENTOCORT [Concomitant]
     Active Substance: BUDESONIDE
     Indication: Crohn^s disease
     Dosage: TAKES FOR FLARES - 3 CAPS A DAY FOR 7 DAYS, THEN 2 CAPS A DAY FOR 7 DAYS THEN 1 CAP A DAY FOR 7 DAYS
     Route: 048

REACTIONS (4)
  - Chest pain [Recovering/Resolving]
  - Dyspnoea [Recovering/Resolving]
  - Neck pain [Recovering/Resolving]
  - Pain in extremity [Recovering/Resolving]

NARRATIVE: CASE EVENT DATE: 20230314
